FAERS Safety Report 11971733 (Version 1)
Quarter: 2016Q1

REPORT INFORMATION
  Report Type: Report from Study
  Country: DE (occurrence: DE)
  Receive Date: 20160128
  Receipt Date: 20160128
  Transmission Date: 20160526
  Serious: Yes (Hospitalization)
  Sender: FDA-Public Use
  Company Number: DE-BIOGEN-2015BI110337

PATIENT
  Age: 30 Year
  Sex: Female
  Weight: 121 kg

DRUGS (3)
  1. TYSABRI [Suspect]
     Active Substance: NATALIZUMAB
     Indication: MULTIPLE SCLEROSIS
     Route: 042
     Dates: start: 20090119
  2. VITAMIN B12 [Concomitant]
     Active Substance: CYANOCOBALAMIN
     Indication: PROPHYLAXIS
     Route: 030
     Dates: start: 20150915
  3. MOVICOL [Concomitant]
     Active Substance: POLYETHYLENE GLYCOL 3350\POTASSIUM CHLORIDE\SODIUM BICARBONATE\SODIUM CHLORIDE
     Indication: CONSTIPATION PROPHYLAXIS
     Route: 048
     Dates: start: 20150915, end: 20151011

REACTIONS (8)
  - C-reactive protein increased [Recovered/Resolved]
  - Metabolic surgery [Recovered/Resolved]
  - Urinary retention [Recovered/Resolved]
  - Alanine aminotransferase increased [Recovered/Resolved]
  - Cystitis [Unknown]
  - Urinary tract infection [Unknown]
  - Prescribed underdose [Not Recovered/Not Resolved]
  - Gamma-glutamyltransferase increased [Recovered/Resolved]

NARRATIVE: CASE EVENT DATE: 20150315
